FAERS Safety Report 9860824 (Version 1)
Quarter: 2014Q1

REPORT INFORMATION
  Report Type: Spontaneous
  Country: US (occurrence: US)
  Receive Date: 20140202
  Receipt Date: 20140202
  Transmission Date: 20141002
  Serious: No
  Sender: FDA-Public Use
  Company Number: US-ALLERGAN-1301875US

PATIENT
  Sex: Female

DRUGS (3)
  1. BOTOX COSMETIC [Suspect]
     Indication: SKIN WRINKLING
     Dosage: 40 UNITS, SINGLE
     Route: 030
  2. BOTOX COSMETIC [Suspect]
     Indication: SKIN WRINKLING
  3. BOTOX COSMETIC [Suspect]
     Indication: SKIN WRINKLING

REACTIONS (8)
  - Muscular weakness [Unknown]
  - Acne [Unknown]
  - Night sweats [Unknown]
  - Dry mouth [Unknown]
  - Headache [Unknown]
  - Pain in jaw [Unknown]
  - Arthralgia [Unknown]
  - Musculoskeletal pain [Unknown]
